FAERS Safety Report 9606011 (Version 1)
Quarter: 2013Q4

REPORT INFORMATION
  Report Type: Spontaneous
  Country: US (occurrence: US)
  Receive Date: 20131008
  Receipt Date: 20131008
  Transmission Date: 20140711
  Serious: No
  Sender: FDA-Public Use
  Company Number: US-AMGEN-USASP2013038827

PATIENT
  Age: 75 Year
  Sex: Female

DRUGS (13)
  1. PROLIA [Suspect]
     Indication: OSTEOPENIA
     Dosage: UNK
     Dates: start: 201210
  2. LIPITOR [Concomitant]
     Dosage: 10 MG, QD
  3. ASPIRIN [Concomitant]
     Dosage: 325 MG, QD
  4. DILTIAZEM [Concomitant]
     Dosage: 240 MG, QD
  5. LASIX                              /00032601/ [Concomitant]
     Dosage: 10 MG, BID
  6. COREG [Concomitant]
     Dosage: 25 MG, BID
  7. PRILOSEC                           /00661201/ [Concomitant]
     Dosage: 20 MG, BID
  8. METHYLDOPA [Concomitant]
     Dosage: 250 MG, QD
  9. LYRICA [Concomitant]
     Dosage: 75 MG, QD
  10. AMBIEN [Concomitant]
  11. LOVAZA [Concomitant]
     Dosage: 1 G, QD
  12. HYDRALAZINE [Concomitant]
     Dosage: 25 MG, TID
  13. VITAMIN D                          /00318501/ [Concomitant]

REACTIONS (5)
  - Nodule [Unknown]
  - Gait disturbance [Unknown]
  - Myalgia [Unknown]
  - Arthralgia [Unknown]
  - Pain in extremity [Not Recovered/Not Resolved]
